FAERS Safety Report 18078450 (Version 1)
Quarter: 2020Q3

REPORT INFORMATION
  Report Type: Spontaneous
  Country: US (occurrence: US)
  Receive Date: 20200727
  Receipt Date: 20200727
  Transmission Date: 20201103
  Serious: No
  Sender: FDA-Public Use
  Company Number: None

PATIENT
  Age: 70 Year
  Sex: Male
  Weight: 86.1 kg

DRUGS (7)
  1. METHYLPREDNISOLONE 20 MG IV Q6H [Concomitant]
     Dates: start: 20200718, end: 20200721
  2. CEFTRIAXONE 1 GM IV Q24H [Concomitant]
     Dates: start: 20200718, end: 20200724
  3. FUROSIME 20 MG IVPUSH DAILY [Concomitant]
     Dates: start: 20200718, end: 20200722
  4. AZITHROMYCIN 500 MY PO DAILY [Concomitant]
     Dates: start: 20200718, end: 20200722
  5. REMDESIVIR. [Suspect]
     Active Substance: REMDESIVIR
     Indication: COVID-19 PNEUMONIA
     Route: 042
     Dates: start: 20200719, end: 20200721
  6. PREDNISONE 40 MG DAILY [Concomitant]
     Dates: start: 20200721
  7. ENOXAPARIN 40 MG SQ Q12H [Concomitant]
     Dates: start: 20200718

REACTIONS (1)
  - Alanine aminotransferase increased [None]

NARRATIVE: CASE EVENT DATE: 20200722
